FAERS Safety Report 14127332 (Version 1)
Quarter: 2017Q4

REPORT INFORMATION
  Report Type: Spontaneous
  Country: FR (occurrence: FR)
  Receive Date: 20171026
  Receipt Date: 20171026
  Transmission Date: 20180321
  Serious: Yes (Other)
  Sender: FDA-Public Use
  Company Number: FR-ROCHE-2013186

PATIENT
  Age: 21 Year
  Sex: Female

DRUGS (3)
  1. ZITHROMAX [Suspect]
     Active Substance: AZITHROMYCIN DIHYDRATE
     Indication: SEXUALLY TRANSMITTED DISEASE
     Route: 048
     Dates: start: 20171006, end: 20171006
  2. POLYGYNAX (FRANCE) [Concomitant]
     Dosage: FOR 15 DAYS
     Route: 065
  3. ROCEPHINE [Suspect]
     Active Substance: CEFTRIAXONE SODIUM
     Indication: SEXUALLY TRANSMITTED DISEASE
     Route: 065
     Dates: start: 20171006, end: 20171006

REACTIONS (6)
  - Erythema [Recovered/Resolved]
  - Pruritus [Recovered/Resolved]
  - Conjunctivitis [Recovered/Resolved]
  - Urticaria [Recovered/Resolved]
  - Nausea [Recovered/Resolved]
  - Headache [Recovered/Resolved]

NARRATIVE: CASE EVENT DATE: 20171006
